FAERS Safety Report 7098597-9 (Version None)
Quarter: 2010Q4

REPORT INFORMATION
  Report Type: 
  Country: None (occurrence: None)
  Receive Date: 20101112
  Receipt Date: 20090730
  Transmission Date: 20110411
  Serious: No
  Sender: FDA-Public Use
  Company Number: US-KINGPHARMUSA00001-K200900908

PATIENT
  Age: 51 Year
  Sex: Female

DRUGS (5)
  1. SKELAXIN [Suspect]
     Indication: MUSCLE RELAXANT THERAPY
     Dosage: 800 MG, BID
     Route: 048
     Dates: start: 20090701
  2. ANDRODERM [Interacting]
     Indication: BLOOD TESTOSTERONE DECREASED
     Dosage: 1 PATCH, QD
     Route: 062
     Dates: start: 20090701, end: 20090718
  3. ANDRODERM [Interacting]
     Dosage: 1 PATCH, QD
     Route: 062
     Dates: start: 20090601, end: 20090701
  4. METFORMIN [Interacting]
     Indication: DIABETES MELLITUS
     Dosage: 500 MG, BID
     Route: 048
     Dates: start: 20090601
  5. LIPITOR [Interacting]
     Indication: BLOOD CHOLESTEROL INCREASED
     Dosage: 20 MG, QD
     Route: 048
     Dates: start: 20090701

REACTIONS (5)
  - APPLICATION SITE DRYNESS [None]
  - APPLICATION SITE ERYTHEMA [None]
  - APPLICATION SITE IRRITATION [None]
  - APPLICATION SITE PRURITUS [None]
  - DRUG INTERACTION [None]
